FAERS Safety Report 23085496 (Version 1)
Quarter: 2023Q4

REPORT INFORMATION
  Report Type: Spontaneous
  Country: TR (occurrence: TR)
  Receive Date: 20231019
  Receipt Date: 20231019
  Transmission Date: 20240110
  Serious: No
  Sender: FDA-Public Use
  Company Number: TR-JAZZ PHARMACEUTICALS-2023-TR-014697

PATIENT
  Age: 45 Year
  Sex: Male
  Weight: 102 kg

DRUGS (2)
  1. SODIUM OXYBATE [Suspect]
     Active Substance: SODIUM OXYBATE
     Indication: Narcolepsy
     Dosage: 4.5 GRAM, QD
     Route: 048
     Dates: start: 20230620
  2. SODIUM OXYBATE [Suspect]
     Active Substance: SODIUM OXYBATE
     Indication: Cataplexy

REACTIONS (6)
  - Eczema [Not Recovered/Not Resolved]
  - Restless legs syndrome [Not Recovered/Not Resolved]
  - Back pain [Recovered/Resolved]
  - Muscle contractions involuntary [Recovered/Resolved]
  - Burning sensation [Recovered/Resolved]
  - Insomnia [Recovered/Resolved]

NARRATIVE: CASE EVENT DATE: 20230621
